FAERS Safety Report 20525788 (Version 2)
Quarter: 2022Q1

REPORT INFORMATION
  Report Type: Report from Study
  Country: US (occurrence: US)
  Receive Date: 20220228
  Receipt Date: 20220323
  Transmission Date: 20220424
  Serious: No
  Sender: FDA-Public Use
  Company Number: US-NOVARTISTESTPH-NVSC2022US041633

PATIENT
  Sex: Male

DRUGS (3)
  1. TABRECTA [Suspect]
     Active Substance: CAPMATINIB
     Indication: Lung neoplasm malignant
     Dosage: 400 MG, BID
     Route: 048
  2. TABRECTA [Suspect]
     Active Substance: CAPMATINIB
     Route: 048
  3. TABRECTA [Suspect]
     Active Substance: CAPMATINIB
     Dosage: 200 MG, QD
     Route: 048

REACTIONS (8)
  - Fatigue [Recovering/Resolving]
  - Decreased appetite [Recovering/Resolving]
  - Mental status changes [Recovered/Resolved]
  - Blood sodium decreased [Not Recovered/Not Resolved]
  - Thirst [Not Recovered/Not Resolved]
  - Oedema [Not Recovered/Not Resolved]
  - Dry throat [Not Recovered/Not Resolved]
  - Mental status changes [Recovering/Resolving]
